FAERS Safety Report 9169203 (Version 1)
Quarter: 2013Q1

REPORT INFORMATION
  Report Type: Spontaneous
  Country: US (occurrence: US)
  Receive Date: 20130318
  Receipt Date: 20130318
  Transmission Date: 20140127
  Serious: Yes (Life-Threatening, Hospitalization)
  Sender: FDA-Public Use
  Company Number: US-JNJFOC-20130216324

PATIENT
  Age: 57 Year
  Sex: Male
  Weight: 94.33 kg

DRUGS (25)
  1. PREZISTA [Suspect]
     Indication: HIV INFECTION
     Route: 048
     Dates: start: 20070601
  2. TYLENOL [Suspect]
     Route: 065
  3. TYLENOL [Suspect]
     Indication: PRODUCT USED FOR UNKNOWN INDICATION
     Route: 065
  4. ELVITEGRAVIR [Suspect]
     Indication: HIV INFECTION
     Route: 048
     Dates: start: 20100731
  5. NORVIR [Suspect]
     Indication: HIV INFECTION
     Route: 048
     Dates: start: 20070601
  6. VIREAD [Suspect]
     Indication: HIV INFECTION
     Route: 048
     Dates: start: 20090611
  7. SELZENTRY [Suspect]
     Indication: HIV INFECTION
     Route: 048
     Dates: start: 20070601
  8. EMTRIVA [Suspect]
     Indication: HIV INFECTION
     Route: 048
     Dates: start: 20090611
  9. VANCOMYCIN [Suspect]
     Indication: ANTIFUNGAL PROPHYLAXIS
     Route: 065
  10. GABAPENTIN [Concomitant]
     Route: 065
     Dates: start: 200504
  11. BACTRIM [Concomitant]
     Route: 065
     Dates: start: 20030317
  12. MOMETASONE [Concomitant]
     Route: 065
     Dates: start: 200512
  13. KETOCONAZOLE [Concomitant]
     Route: 065
     Dates: start: 20030317
  14. FAMCICLOVIR [Concomitant]
     Route: 065
     Dates: start: 20021217
  15. NEPRO [Concomitant]
     Route: 065
     Dates: start: 200802
  16. LAMISIL [Concomitant]
     Route: 065
     Dates: start: 20070727
  17. VICODIN [Concomitant]
     Route: 065
     Dates: start: 20070914
  18. EPOETIN ZETA [Concomitant]
     Route: 065
  19. ALKA-SELTZER [Concomitant]
     Route: 065
     Dates: start: 20080428
  20. FUROSEMIDE [Concomitant]
     Route: 065
     Dates: start: 20090909
  21. FOLIC ACID [Concomitant]
     Route: 065
     Dates: start: 20121031
  22. CYANOCOBALAMIN [Concomitant]
     Route: 065
     Dates: start: 20120823
  23. HECTOROL [Concomitant]
     Route: 065
     Dates: start: 20120827
  24. ZOVIRAX [Concomitant]
     Route: 065
     Dates: start: 20111026
  25. LASIX [Concomitant]
     Route: 065

REACTIONS (14)
  - Pneumonia [Recovered/Resolved]
  - Rectal haemorrhage [Unknown]
  - Pyrexia [Unknown]
  - Renal failure chronic [Not Recovered/Not Resolved]
  - Local swelling [Recovering/Resolving]
  - Sinus tachycardia [Unknown]
  - Constipation [Unknown]
  - Nausea [Unknown]
  - Anaemia of chronic disease [Not Recovered/Not Resolved]
  - Neuropathy peripheral [Unknown]
  - Arthralgia [Unknown]
  - Hypoaesthesia [Unknown]
  - Anxiety [Unknown]
  - Rash [Unknown]
